FAERS Safety Report 15401088 (Version 1)
Quarter: 2018Q3

REPORT INFORMATION
  Report Type: Spontaneous
  Country: US (occurrence: US)
  Receive Date: 20180919
  Receipt Date: 20180919
  Transmission Date: 20181010
  Serious: No
  Sender: FDA-Public Use
  Company Number: US-TEVA-2018-US-955958

PATIENT
  Age: 62 Year
  Sex: Female
  Weight: 61.22 kg

DRUGS (3)
  1. LEVOTHYROXINE. [Concomitant]
     Active Substance: LEVOTHYROXINE
     Dates: start: 2018
  2. LITHIUM. [Concomitant]
     Active Substance: LITHIUM
  3. FEXOFENADINE [Suspect]
     Active Substance: FEXOFENADINE\FEXOFENADINE HYDROCHLORIDE
     Indication: THROAT IRRITATION
     Dosage: 180 MILLIGRAM DAILY;
     Route: 048
     Dates: start: 20180902, end: 201809

REACTIONS (2)
  - Asthenia [Recovered/Resolved]
  - Apathy [Recovered/Resolved]

NARRATIVE: CASE EVENT DATE: 201809
